FAERS Safety Report 5971408-8 (Version None)
Quarter: 2008Q4

REPORT INFORMATION
  Report Type: 
  Country: None (occurrence: None)
  Receive Date: 20081130
  Receipt Date: 20081121
  Transmission Date: 20090506
  Serious: Yes (Other)
  Sender: FDA-Public Use
  Company Number: DE-PFIZER INC-2008100426

PATIENT
  Age: 65 Year
  Sex: Female

DRUGS (1)
  1. AZULFIDINE EN-TABS [Suspect]
     Indication: CROHN'S DISEASE
     Route: 048

REACTIONS (2)
  - DYSPNOEA [None]
  - TACHYCARDIA [None]
